FAERS Safety Report 9354597 (Version 1)
Quarter: 2013Q2

REPORT INFORMATION
  Report Type: Report from Study
  Country: US (occurrence: US)
  Receive Date: 20130618
  Receipt Date: 20130618
  Transmission Date: 20140414
  Serious: Yes (Hospitalization)
  Sender: FDA-Public Use
  Company Number: GXBR2013US001211

PATIENT
  Age: 70 Year
  Sex: Male

DRUGS (1)
  1. ENOXAPARIN SODIUM [Suspect]
     Dosage: 100 MG, BID
     Route: 058

REACTIONS (2)
  - Syncope [Unknown]
  - Convulsion [Unknown]
